FAERS Safety Report 4376577-1 (Version None)
Quarter: 2004Q2

REPORT INFORMATION
  Report Type: 
  Country: None (occurrence: None)
  Receive Date: 20040614
  Receipt Date: 20040602
  Transmission Date: 20050107
  Serious: Yes (Hospitalization)
  Sender: FDA-Public Use
  Company Number: CA-JNJFOC-20040600557

PATIENT
  Sex: Female
  Weight: 70.1 kg

DRUGS (10)
  1. REMICADE [Suspect]
     Indication: RHEUMATOID ARTHRITIS
     Route: 042
  2. METHOTREXATE [Concomitant]
     Indication: RHEUMATOID ARTHRITIS
     Route: 049
  3. METFORMIN HCL [Concomitant]
     Route: 049
  4. FOLIC ACID [Concomitant]
     Route: 049
  5. PREDNISONE [Concomitant]
     Indication: RHEUMATOID ARTHRITIS
     Dosage: 7.5 MG 1 1/2 TABLET DAILY
     Route: 049
  6. VIOXX [Concomitant]
     Indication: RHEUMATOID ARTHRITIS
  7. FOSAMAX [Concomitant]
     Indication: OSTEOPOROSIS
  8. CALCIUM 500 MG + VITAMIN D [Concomitant]
  9. CALCIUM 500 MG + VITAMIN D [Concomitant]
  10. CALCIUM 500 MG + VITAMIN D [Concomitant]
     Indication: OSTEOPOROSIS
     Dosage: BID

REACTIONS (2)
  - BLOOD GLUCOSE INCREASED [None]
  - CELLULITIS [None]
